FAERS Safety Report 26101401 (Version 1)
Quarter: 2025Q4

REPORT INFORMATION
  Report Type: Spontaneous
  Country: EU (occurrence: EU)
  Receive Date: 20251128
  Receipt Date: 20251128
  Transmission Date: 20260117
  Serious: Yes (Hospitalization)
  Sender: BAUSCH AND LOMB
  Company Number: EU-MIMS-BCONMC-19627

PATIENT
  Age: 53 Year
  Sex: Female

DRUGS (2)
  1. AZATHIOPRINE [Suspect]
     Active Substance: AZATHIOPRINE
     Indication: Product used for unknown indication
     Dosage: UNK
     Route: 065
  2. HULIO [Suspect]
     Active Substance: ADALIMUMAB-FKJP
     Indication: Product used for unknown indication
     Dosage: Q2W , 40 MG/0.8 ML SOLUTION FOR INJECTION
     Route: 065

REACTIONS (1)
  - Spondylolisthesis [Not Recovered/Not Resolved]

NARRATIVE: CASE EVENT DATE: 20250321
